FAERS Safety Report 9160721 (Version 1)
Quarter: 2013Q1

REPORT INFORMATION
  Report Type: Spontaneous
  Country: US (occurrence: US)
  Receive Date: 20130313
  Receipt Date: 20130313
  Transmission Date: 20140127
  Serious: Yes (Other)
  Sender: FDA-Public Use
  Company Number: US-AMGEN-USASP2013015460

PATIENT
  Age: 48 Year
  Sex: Male

DRUGS (1)
  1. ENBREL [Suspect]
     Indication: PSORIASIS
     Dosage: 50 MG, 3 TIMES/WK
     Dates: start: 20050101, end: 20100528

REACTIONS (2)
  - Leukaemia [Not Recovered/Not Resolved]
  - Memory impairment [Not Recovered/Not Resolved]
